FAERS Safety Report 4582082-X (Version None)
Quarter: 2005Q1

REPORT INFORMATION
  Report Type: 
  Country: None (occurrence: None)
  Receive Date: 20050119
  Receipt Date: 20040624
  Transmission Date: 20050727
  Serious: Yes (Other)
  Sender: FDA-Public Use
  Company Number: A03200402056

PATIENT
  Age: 84 Year
  Sex: Female
  Weight: 31.7518 kg

DRUGS (9)
  1. PLAVIX [Suspect]
     Indication: TRANSIENT ISCHAEMIC ATTACK
     Dosage: 75 MG QD - ORAL
     Route: 048
     Dates: start: 20030901
  2. ACETYLSALICYLIC ACID SRT [Concomitant]
  3. ATENOLOL [Concomitant]
  4. ISOSORBIDE MONONITRATE [Concomitant]
  5. DILTIAZEM HYDROCHLORIDE [Concomitant]
  6. DIGOXIN [Concomitant]
  7. LEVOTHYROXINE SODIUM [Concomitant]
  8. CALCIUM CARBONATE [Concomitant]
  9. DIAZEPAM [Concomitant]

REACTIONS (3)
  - DRUG INEFFECTIVE [None]
  - HEADACHE [None]
  - TRANSIENT ISCHAEMIC ATTACK [None]
